FAERS Safety Report 14350885 (Version 1)
Quarter: 2018Q1

REPORT INFORMATION
  Report Type: Spontaneous
  Country: FR (occurrence: FR)
  Receive Date: 20180104
  Receipt Date: 20180104
  Transmission Date: 20180509
  Serious: Yes (Other)
  Sender: FDA-Public Use
  Company Number: FR-GLAXOSMITHKLINE-FR2017GSK202445

PATIENT
  Age: 62 Year
  Sex: Female

DRUGS (4)
  1. ANTIDEPRESSANTS NOS [Concomitant]
     Active Substance: UNSPECIFIED INGREDIENT
     Indication: PRODUCT USED FOR UNKNOWN INDICATION
     Dosage: UNK
  2. NICOPATCH [Suspect]
     Active Substance: NICOTINE
     Indication: SMOKING CESSATION THERAPY
     Dosage: UNK UNK, QD
     Route: 062
     Dates: start: 2017, end: 2017
  3. NICOPATCH [Suspect]
     Active Substance: NICOTINE
     Dosage: UNK, 21 MG/24 H, STARTED 3 MONTHS PRIOR TO THE REPORT TIME
     Dates: start: 2017
  4. ANXIOLYTICS [Concomitant]
     Active Substance: UNSPECIFIED INGREDIENT
     Indication: PRODUCT USED FOR UNKNOWN INDICATION
     Dosage: UNK

REACTIONS (7)
  - Agitation [Not Recovered/Not Resolved]
  - Decreased appetite [Not Recovered/Not Resolved]
  - Treatment noncompliance [Unknown]
  - Abnormal loss of weight [Not Recovered/Not Resolved]
  - Overdose [Unknown]
  - Stress [Not Recovered/Not Resolved]
  - Nicotine dependence [Recovered/Resolved]

NARRATIVE: CASE EVENT DATE: 2017
